FAERS Safety Report 7065594-9 (Version None)
Quarter: 2010Q4

REPORT INFORMATION
  Report Type: 
  Country: None (occurrence: None)
  Receive Date: 20101027
  Receipt Date: 20101019
  Transmission Date: 20110411
  Serious: Yes (Hospitalization)
  Sender: FDA-Public Use
  Company Number: FI-TEVA-252276ISR

PATIENT
  Sex: Male

DRUGS (9)
  1. TAMSULOSIN [Suspect]
     Indication: BENIGN PROSTATIC HYPERPLASIA
     Route: 048
     Dates: start: 20100813, end: 20100820
  2. RAMIPRIL [Concomitant]
     Indication: CARDIAC FAILURE
  3. BISOPROLOL [Concomitant]
     Indication: CARDIAC FAILURE
     Route: 048
  4. WARFARIN SODIUM [Concomitant]
     Indication: ATRIAL FIBRILLATION
     Dosage: SPECIAL INSTRUCTIONS
     Route: 048
  5. FUROSEMIDE [Concomitant]
     Indication: CARDIAC FAILURE
  6. ACETYLSALICYLIC ACID [Concomitant]
     Indication: CEREBRAL DISORDER
  7. OMEPRAZOLE [Concomitant]
  8. SERETIDE [Concomitant]
  9. SALBUTAMOL [Concomitant]

REACTIONS (1)
  - ACUTE INTERSTITIAL PNEUMONITIS [None]
